FAERS Safety Report 24443894 (Version 2)
Quarter: 2025Q1

REPORT INFORMATION
  Report Type: Spontaneous
  Country: US (occurrence: US)
  Receive Date: 20241016
  Receipt Date: 20250108
  Transmission Date: 20250408
  Serious: Yes (Hospitalization)
  Sender: Kilitch Healthcare
  Company Number: US-KHC-000235

PATIENT
  Sex: Female

DRUGS (1)
  1. DRY EYE RELIEF (CARBOXYMETHYLCELLULOSE SODIUM) [Suspect]
     Active Substance: CARBOXYMETHYLCELLULOSE SODIUM
     Indication: Product used for unknown indication
     Route: 065

REACTIONS (4)
  - Eye infection [Unknown]
  - Eye discharge [Unknown]
  - Recalled product administered [Unknown]
  - Eye irritation [Unknown]
